FAERS Safety Report 5343750-5 (Version None)
Quarter: 2007Q2

REPORT INFORMATION
  Report Type: 
  Country: None (occurrence: None)
  Receive Date: 20070531
  Receipt Date: 20070521
  Transmission Date: 20071010
  Serious: Yes (Death, Hospitalization)
  Sender: FDA-Public Use
  Company Number: 07H-163-0312651-00

PATIENT
  Age: 46 Year
  Sex: Male

DRUGS (3)
  1. A-METHOPRED INJECTION (METHYLPREDNISOLONE SODIUM) [Suspect]
     Indication: DYSPNOEA
     Dosage: 1 GM, INTRAVENOUS
     Route: 042
  2. A-METHOPRED INJECTION (METHYLPREDNISOLONE SODIUM) [Suspect]
     Indication: MUSCULAR WEAKNESS
     Dosage: 1 GM, INTRAVENOUS
     Route: 042
  3. IMMUNOGLOBULIN (IMMUNOGLOBULIN) [Concomitant]

REACTIONS (8)
  - CARDIAC ARREST [None]
  - ESCHERICHIA BACTERAEMIA [None]
  - HAEMOPTYSIS [None]
  - LACTIC ACIDOSIS [None]
  - PURPURA [None]
  - RESPIRATORY FAILURE [None]
  - SEPTIC SHOCK [None]
  - STRONGYLOIDIASIS [None]
